FAERS Safety Report 4716450-X (Version None)
Quarter: 2005Q3

REPORT INFORMATION
  Report Type: 
  Country: None (occurrence: None)
  Receive Date: 20050713
  Receipt Date: 20050701
  Transmission Date: 20060218
  Serious: Yes (Other)
  Sender: FDA-Public Use
  Company Number: 2005US000869

PATIENT
  Age: 60 Year
  Sex: Female

DRUGS (3)
  1. PROGRAF (TACROLIMUS) CAPSULE [Suspect]
     Indication: PROPHYLAXIS AGAINST TRANSPLANT REJECTION
  2. PREDNISONE [Concomitant]
  3. EPREX   /SCH/(EPOETIN  ALFA) [Concomitant]

REACTIONS (2)
  - APLASIA [None]
  - HAEMOGLOBIN DECREASED [None]
